FAERS Safety Report 5460729-3 (Version None)
Quarter: 2007Q3

REPORT INFORMATION
  Report Type: 
  Country: None (occurrence: None)
  Receive Date: 20070919
  Receipt Date: 20070912
  Transmission Date: 20080115
  Serious: Yes (Other)
  Sender: FDA-Public Use
  Company Number: GB-MERCK-0709GBR00052

PATIENT

DRUGS (1)
  1. SINGULAIR [Suspect]
     Indication: DERMATITIS ATOPIC
     Route: 048

REACTIONS (1)
  - SEPSIS [None]
